FAERS Safety Report 6182990-2 (Version None)
Quarter: 2009Q2

REPORT INFORMATION
  Report Type: 
  Country: None (occurrence: None)
  Receive Date: 20090505
  Receipt Date: 20090420
  Transmission Date: 20091009
  Serious: Yes (Hospitalization)
  Sender: FDA-Public Use
  Company Number: 2009IT004484

PATIENT
  Age: 69 Year
  Sex: Female

DRUGS (4)
  1. ALOXI [Suspect]
     Indication: PROPHYLAXIS OF NAUSEA AND VOMITING
     Dosage: 250 UG, INTRAVENOUS
     Route: 042
     Dates: start: 20090312, end: 20090312
  2. GEMZAR [Suspect]
     Indication: LUNG NEOPLASM MALIGNANT
     Dosage: 1570 MG, INTRAVENOUS
     Route: 042
     Dates: start: 20090312, end: 20090312
  3. CISPLATIN [Suspect]
     Indication: LUNG NEOPLASM MALIGNANT
     Dosage: 110 MG, INTRAVENOUS
     Route: 042
     Dates: start: 20090312, end: 20090312
  4. MANNITOL (MANNITOL) SOLUTION (EXCEPT SYRUP) [Concomitant]

REACTIONS (2)
  - DYSPNOEA [None]
  - WHITE BLOOD CELL COUNT INCREASED [None]
